FAERS Safety Report 5311247-4 (Version None)
Quarter: 2007Q2

REPORT INFORMATION
  Report Type: 
  Country: None (occurrence: None)
  Receive Date: 20070430
  Receipt Date: 20070418
  Transmission Date: 20071010
  Serious: Yes (Other)
  Sender: FDA-Public Use
  Company Number: PHHO2007BR07027

PATIENT
  Age: 61 Year
  Sex: Female
  Weight: 85 kg

DRUGS (5)
  1. ATENOLOL [Concomitant]
  2. OMEPRAZOLE [Concomitant]
  3. ANTIBIOTICS [Concomitant]
  4. DIOVAN [Suspect]
     Indication: HYPERTENSION
     Dates: start: 20070312
  5. DIOVAN HCT [Suspect]
     Indication: HYPERTENSION
     Dosage: 160MG/12.5MG DAILY
     Route: 048

REACTIONS (8)
  - BLOOD PRESSURE INCREASED [None]
  - CONCOMITANT DISEASE AGGRAVATED [None]
  - DYSGEUSIA [None]
  - GASTRITIS EROSIVE [None]
  - HEPATIC CYST [None]
  - HEPATIC STEATOSIS [None]
  - PAIN [None]
  - REFLUX GASTRITIS [None]
